FAERS Safety Report 6749781-2 (Version None)
Quarter: 2010Q2

REPORT INFORMATION
  Report Type: 
  Country: None (occurrence: None)
  Receive Date: 20100527
  Receipt Date: 20100519
  Transmission Date: 20101027
  Serious: Yes (Disabling, Other)
  Sender: FDA-Public Use
  Company Number: 2010BN000031

PATIENT
  Age: 53 Year
  Sex: Female

DRUGS (4)
  1. MELPHALAN HYDROCHLORIDE [Suspect]
     Indication: BONE MARROW CONDITIONING REGIMEN
     Dosage: 200 MG/M2;
  2. VINCRISTINE [Suspect]
     Indication: MULTIPLE MYELOMA
  3. DOXORUBICIN HCL [Suspect]
     Indication: MULTIPLE MYELOMA
  4. DEXAMETHASONE [Suspect]
     Indication: MULTIPLE MYELOMA

REACTIONS (7)
  - CANDIDIASIS [None]
  - DISEASE RECURRENCE [None]
  - HAEMODIALYSIS [None]
  - ORAL HERPES [None]
  - RENAL FAILURE [None]
  - STOMATITIS [None]
  - TONGUE DISORDER [None]
